FAERS Safety Report 9228511 (Version 1)
Quarter: 2013Q2

REPORT INFORMATION
  Report Type: Spontaneous
  Country: SY (occurrence: SY)
  Receive Date: 20130412
  Receipt Date: 20130412
  Transmission Date: 20140414
  Serious: Yes (Life-Threatening)
  Sender: FDA-Public Use
  Company Number: SY-GLAXOSMITHKLINE-B0882056A

PATIENT
  Age: 64 Year
  Sex: Male

DRUGS (3)
  1. AVAMYS [Suspect]
     Indication: RHINITIS ALLERGIC
     Dosage: 2PUFF PER DAY
     Route: 045
     Dates: start: 20130316, end: 20130327
  2. FEXOFENADINE [Concomitant]
     Dosage: 120MG PER DAY
  3. ANTIHYPERTENSIVE [Concomitant]

REACTIONS (1)
  - Hypertension [Recovered/Resolved]
